FAERS Safety Report 7537413-5 (Version None)
Quarter: 2011Q2

REPORT INFORMATION
  Report Type: 
  Country: None (occurrence: None)
  Receive Date: 20110609
  Receipt Date: 20110531
  Transmission Date: 20111010
  Serious: No
  Sender: FDA-Public Use
  Company Number: US-PFIZER INC-2011117445

PATIENT
  Sex: Female
  Weight: 40.816 kg

DRUGS (5)
  1. MEDROXYPROGESTERONE ACETATE [Concomitant]
     Dosage: 2.5 MG, DAILY
     Route: 048
  2. CELEBREX [Concomitant]
     Dosage: 200 MG, AS NEEDED
     Route: 048
  3. PENICILLIN G BENZATHINE AND PENICILLIN G PROCAINE [Suspect]
     Dosage: UNK
  4. ACIPHEX [Concomitant]
     Dosage: 20 MG, DAILY AS NEEDED
     Route: 048
  5. ESTRADIOL [Concomitant]

REACTIONS (1)
  - HYPERSENSITIVITY [None]
